FAERS Safety Report 5271196-7 (Version None)
Quarter: 2007Q1

REPORT INFORMATION
  Report Type: 
  Country: None (occurrence: None)
  Receive Date: 20070321
  Receipt Date: 20070319
  Transmission Date: 20070707
  Serious: Yes (Disabling)
  Sender: FDA-Public Use
  Company Number: JP-ELI_LILLY_AND_COMPANY-JP200703003856

PATIENT
  Age: 73 Year
  Sex: Female
  Weight: 56.7 kg

DRUGS (3)
  1. RALOXIFENE HCL [Suspect]
     Indication: OSTEOPOROSIS POSTMENOPAUSAL
     Dosage: 60 MG, DAILY (1/D)
     Route: 048
     Dates: start: 20050107
  2. KETOPROFEN [Concomitant]
     Dosage: UNK, UNKNOWN
     Route: 062
     Dates: start: 20030922
  3. CALCITONIN-SALMON [Concomitant]
     Indication: OSTEOPOROSIS
     Dosage: 10 U, WEEKLY (1/W)
     Route: 030
     Dates: start: 20040706

REACTIONS (1)
  - DIABETES MELLITUS [None]
